FAERS Safety Report 4407321-7 (Version None)
Quarter: 2004Q3

REPORT INFORMATION
  Report Type: 
  Country: None (occurrence: None)
  Receive Date: 20040721
  Receipt Date: 20040713
  Transmission Date: 20050211
  Serious: Yes (Other)
  Sender: FDA-Public Use
  Company Number: 2004047319

PATIENT
  Age: 37 Year
  Sex: Male
  Weight: 81.6475 kg

DRUGS (1)
  1. BENADRYL [Suspect]
     Indication: ARTHROPOD STING
     Dosage: 2 ULTRATABS ONCE, ORAL
     Route: 048
     Dates: start: 20040711, end: 20040711

REACTIONS (3)
  - DRUG HYPERSENSITIVITY [None]
  - GENERALISED OEDEMA [None]
  - SWELLING FACE [None]
